FAERS Safety Report 7914619-4 (Version None)
Quarter: 2011Q4

REPORT INFORMATION
  Report Type: 
  Country: None (occurrence: None)
  Receive Date: 20111110
  Receipt Date: 20111028
  Transmission Date: 20120403
  Serious: Yes (Hospitalization)
  Sender: FDA-Public Use
  Company Number: 2010AR0069

PATIENT
  Age: 2 Year
  Sex: Male

DRUGS (1)
  1. ORFADIN [Suspect]
     Indication: TYROSINAEMIA
     Dosage: 5 MG (5 MG, 1 IN 1 D)
     Dates: start: 20100415

REACTIONS (2)
  - LIVER TRANSPLANT [None]
  - HEPATIC NEOPLASM [None]
